FAERS Safety Report 5321931-4 (Version None)
Quarter: 2007Q2

REPORT INFORMATION
  Report Type: 
  Country: None (occurrence: None)
  Receive Date: 20070511
  Receipt Date: 20070501
  Transmission Date: 20071010
  Serious: Yes (Hospitalization)
  Sender: FDA-Public Use
  Company Number: PHEH2007US06675

PATIENT
  Age: 78 Year
  Sex: Female
  Weight: 71.655 kg

DRUGS (10)
  1. TEKTURNA [Suspect]
     Dosage: 150 MG, QD
     Route: 048
     Dates: start: 20070417
  2. COREG [Concomitant]
     Dosage: 6.25 MG, BID
     Route: 048
  3. DIOVAN [Concomitant]
     Dosage: 320 MG, QD
     Route: 048
  4. LASIX [Concomitant]
     Dosage: 40 MG, QD
     Route: 048
  5. PRAVACHOL [Concomitant]
     Dosage: 80 MG, QHS
     Route: 048
  6. GLIPIZIDE [Concomitant]
     Dosage: 5 MG, TID
     Route: 048
  7. PROCRIT [Concomitant]
     Dosage: 40 U, QW
  8. CLONIDINE [Concomitant]
     Dosage: 0.2 MG, BID
     Route: 048
  9. CARDIZEM [Concomitant]
     Dosage: 300 MG, QD
     Route: 048
  10. ASPIRIN [Concomitant]
     Dosage: 81 MG, QD
     Route: 048

REACTIONS (3)
  - DYSPNOEA [None]
  - ELECTROCARDIOGRAM ABNORMAL [None]
  - FATIGUE [None]
